FAERS Safety Report 5001420-7 (Version None)
Quarter: 2006Q2

REPORT INFORMATION
  Report Type: 
  Country: None (occurrence: None)
  Receive Date: 20060512
  Receipt Date: 20060317
  Transmission Date: 20061013
  Serious: Yes (Hospitalization, Other)
  Sender: FDA-Public Use
  Company Number: US-MERCK-0603USA03061

PATIENT
  Age: 63 Year
  Sex: Male
  Weight: 107 kg

DRUGS (4)
  1. VIOXX [Suspect]
     Indication: ARTHRALGIA
     Route: 048
     Dates: start: 19991118, end: 20041001
  2. VIOXX [Suspect]
     Indication: SHOULDER PAIN
     Route: 048
     Dates: start: 19991118, end: 20041001
  3. ZESTRIL [Concomitant]
     Route: 065
  4. NEXIUM [Concomitant]
     Indication: GASTRIC DISORDER
     Route: 065

REACTIONS (10)
  - CARDIOVASCULAR DISORDER [None]
  - CHEST PAIN [None]
  - CONVULSION [None]
  - DEEP VEIN THROMBOSIS [None]
  - DYSPNOEA [None]
  - HYPERTENSION [None]
  - KNEE ARTHROPLASTY [None]
  - KNEE OPERATION [None]
  - MYOCARDIAL INFARCTION [None]
  - VENA CAVA FILTER INSERTION [None]
